FAERS Safety Report 4911883-0 (Version None)
Quarter: 2006Q1

REPORT INFORMATION
  Report Type: 
  Country: None (occurrence: None)
  Receive Date: 20060213
  Receipt Date: 20060213
  Transmission Date: 20060701
  Serious: Yes (Hospitalization)
  Sender: FDA-Public Use
  Company Number: None

PATIENT
  Sex: Female
  Weight: 128.8216 kg

DRUGS (4)
  1. ZOLOFT [Suspect]
     Indication: POST-TRAUMATIC STRESS DISORDER
     Dosage: 250 MG 1 X 1 DAY ORAL
     Route: 048
     Dates: start: 20050429
  2. ASPIRIN [Concomitant]
  3. PERCOSIT [Concomitant]
  4. VICODIN [Concomitant]

REACTIONS (2)
  - DEPRESSION [None]
  - SUICIDAL IDEATION [None]
